FAERS Safety Report 7980701-9 (Version None)
Quarter: 2011Q4

REPORT INFORMATION
  Report Type: 
  Country: None (occurrence: None)
  Receive Date: 20111214
  Receipt Date: 20111209
  Transmission Date: 20120403
  Serious: Yes (Death, Hospitalization)
  Sender: FDA-Public Use
  Company Number: US-BAYER-2011-119316

PATIENT
  Age: 83 Year
  Sex: Male
  Weight: 78 kg

DRUGS (18)
  1. PANTOPRAZOLE [Concomitant]
     Dosage: UNK
     Dates: start: 20101217, end: 20110104
  2. ASPIRIN [Concomitant]
     Dosage: UNK
  3. CLOPIDOGREL [Concomitant]
     Dosage: UNK
  4. HEPARIN [Suspect]
     Dosage: 0.01 MG/KG, HR
     Route: 042
     Dates: start: 20101216, end: 20101217
  5. TIROFIBAN [Concomitant]
     Dosage: UNK
     Dates: start: 20101216, end: 20101216
  6. SINVASTATINA MEPHA [Concomitant]
     Dosage: UNK
     Dates: start: 20101217, end: 20110104
  7. HEPARIN [Suspect]
     Indication: PERCUTANEOUS CORONARY INTERVENTION
     Dosage: 66 IU/KG, BOLUS
     Dates: start: 20101216, end: 20101216
  8. HEPARIN [Suspect]
     Dosage: 0.02 MG/KG BOLUS
     Route: 042
     Dates: start: 20101216, end: 20101216
  9. CLOPIDOGREL [Concomitant]
     Dosage: UNK
  10. HEPARIN [Concomitant]
  11. VALSARTAN [Concomitant]
     Dosage: UNK
     Dates: end: 20110104
  12. ASPIRIN [Concomitant]
     Dosage: UNK
  13. BISOPROLOL FUMARATE [Concomitant]
     Dosage: UNK
     Dates: end: 20110104
  14. AMLODIPINE [Suspect]
     Dosage: UNK
     Dates: end: 20101216
  15. IOPROMIDE [Suspect]
     Indication: ANGIOGRAM
     Dosage: 222 ML, ONCE
     Route: 042
     Dates: start: 20101216, end: 20101216
  16. ASPIRIN [Concomitant]
  17. CLOPIDOGREL [Concomitant]
     Dosage: UNK
     Dates: start: 20101216, end: 20101216
  18. ACETYLCYSTEINE [Concomitant]
     Dosage: UNK
     Dates: start: 20101216, end: 20110104

REACTIONS (2)
  - RENAL FAILURE ACUTE [None]
  - PNEUMONIA [None]
